FAERS Safety Report 15735213 (Version 1)
Quarter: 2018Q4

REPORT INFORMATION
  Report Type: Spontaneous
  Country: US (occurrence: US)
  Receive Date: 20181218
  Receipt Date: 20181218
  Transmission Date: 20190205
  Serious: Yes (Hospitalization, Other)
  Sender: FDA-Public Use
  Company Number: None

PATIENT
  Sex: Female

DRUGS (9)
  1. METOPROLOL. [Concomitant]
     Active Substance: METOPROLOL
  2. ZOLOFT [Concomitant]
     Active Substance: SERTRALINE HYDROCHLORIDE
  3. DEXILANT [Concomitant]
     Active Substance: DEXLANSOPRAZOLE
  4. LEVOTHYROXIN [Concomitant]
     Active Substance: LEVOTHYROXINE
  5. PANTOPRAZOLE [Concomitant]
     Active Substance: PANTOPRAZOLE
  6. CIMZIA [Suspect]
     Active Substance: CERTOLIZUMAB PEGOL
     Indication: CROHN^S DISEASE
     Dosage: ?          OTHER FREQUENCY:QM;?
     Route: 058
     Dates: start: 20171024
  7. ESTRADIOL. [Concomitant]
     Active Substance: ESTRADIOL
  8. LIALDA [Concomitant]
     Active Substance: MESALAMINE
  9. MEGESTROL [Concomitant]
     Active Substance: MEGESTROL

REACTIONS (1)
  - Product dose omission [None]
